FAERS Safety Report 4935287-X (Version None)
Quarter: 2006Q1

REPORT INFORMATION
  Report Type: 
  Country: None (occurrence: None)
  Receive Date: 20060302
  Receipt Date: 20060213
  Transmission Date: 20060701
  Serious: Yes (Other)
  Sender: FDA-Public Use
  Company Number: US_0510122996

PATIENT
  Age: 67 Year
  Sex: Male
  Weight: 99.8 kg

DRUGS (4)
  1. ZYPREXA [Suspect]
     Indication: BIPOLAR DISORDER
     Dosage: 10 MG , DAILY (1/D), ORAL : 15 MG, DAILY (1/D), ORAL  : 5 MG, DAILY (1/D), ORAL
     Route: 048
     Dates: start: 20000328, end: 20020930
  2. WELLBUTRIN [Concomitant]
  3. CARBIDOPA [Concomitant]
  4. LEVODOPA [Concomitant]

REACTIONS (32)
  - ALCOHOL POISONING [None]
  - ALCOHOL USE [None]
  - ARTERIOSCLEROSIS [None]
  - BLOOD CHOLESTEROL INCREASED [None]
  - BLOOD CREATINE PHOSPHOKINASE INCREASED [None]
  - BLOOD CREATINE PHOSPHOKINASE MB INCREASED [None]
  - BLOOD GLUCOSE INCREASED [None]
  - BLOOD TRIGLYCERIDES INCREASED [None]
  - BRONCHITIS [None]
  - CHEST PAIN [None]
  - CHOLECYSTITIS ACUTE [None]
  - CHRONIC OBSTRUCTIVE PULMONARY DISEASE [None]
  - DEMENTIA [None]
  - DIVERTICULUM [None]
  - DRUG LEVEL ABOVE THERAPEUTIC [None]
  - DRUG SCREEN POSITIVE [None]
  - DRUG TOXICITY [None]
  - DYSKINESIA [None]
  - FLUID RETENTION [None]
  - GLYCOSYLATED HAEMOGLOBIN INCREASED [None]
  - HEPATIC STEATOSIS [None]
  - HIGH DENSITY LIPOPROTEIN DECREASED [None]
  - HYPERLIPIDAEMIA [None]
  - HYPERTENSION [None]
  - LOW DENSITY LIPOPROTEIN INCREASED [None]
  - NEOPLASM MALIGNANT [None]
  - NEUROPATHY PERIPHERAL [None]
  - OPISTHOTONUS [None]
  - TOTAL CHOLESTEROL/HDL RATIO INCREASED [None]
  - TREMOR [None]
  - TROPONIN INCREASED [None]
  - WEIGHT INCREASED [None]
